FAERS Safety Report 6312395-2 (Version None)
Quarter: 2009Q3

REPORT INFORMATION
  Report Type: 
  Country: None (occurrence: None)
  Receive Date: 20090817
  Receipt Date: 20090803
  Transmission Date: 20100115
  Serious: Yes (Life-Threatening, Hospitalization)
  Sender: FDA-Public Use
  Company Number: BE-ABBOTT-09P-013-0589030-00

PATIENT
  Sex: Female
  Weight: 63 kg

DRUGS (5)
  1. REDUCTIL 15MG [Suspect]
     Indication: WEIGHT INCREASED
     Dates: start: 20080401, end: 20080701
  2. REDUCTIL 15MG [Suspect]
     Dates: start: 20081101, end: 20081201
  3. REDUCTIL 15MG [Suspect]
     Dates: start: 20090101
  4. REDUCTIL 15MG [Suspect]
  5. REDUCTIL 15MG [Suspect]

REACTIONS (4)
  - POLYSEROSITIS [None]
  - PYREXIA [None]
  - RENAL FAILURE [None]
  - THROMBOCYTOPENIC PURPURA [None]
